FAERS Safety Report 9925453 (Version 4)
Quarter: 2014Q2

REPORT INFORMATION
  Report Type: Report from Study
  Country: US (occurrence: US)
  Receive Date: 20140226
  Receipt Date: 20140617
  Transmission Date: 20141212
  Serious: Yes (Other)
  Sender: FDA-Public Use
  Company Number: US-ALEXION-A201400520

PATIENT
  Sex: 0

DRUGS (7)
  1. SOLIRIS [Suspect]
     Indication: PAROXYSMAL NOCTURNAL HAEMOGLOBINURIA
     Dosage: 900 MG, Q2W
     Route: 042
     Dates: start: 20110826
  2. SOLIRIS [Suspect]
     Dosage: 1200 MG, Q2W
     Route: 042
  3. LOVENOX [Concomitant]
     Indication: ANTICOAGULANT THERAPY
     Dosage: 40 MG, QD
     Route: 058
     Dates: start: 20131111
  4. PRENATAL VITAMINS                  /07426201/ [Concomitant]
     Indication: PRODUCT USED FOR UNKNOWN INDICATION
     Dosage: UNK
     Route: 048
  5. COUMADIN                           /00014802/ [Concomitant]
     Indication: ANTICOAGULANT THERAPY
     Dosage: 5 MG, QD
     Route: 065
     Dates: start: 20110812
  6. PREDNISONE [Concomitant]
     Indication: STEROID THERAPY
     Dosage: UNK, QD
     Route: 065
     Dates: start: 20110812
  7. FOLIC ACID [Concomitant]
     Indication: PRODUCT USED FOR UNKNOWN INDICATION
     Dosage: UNK, QD
     Route: 065
     Dates: start: 20110812

REACTIONS (3)
  - Haemoglobin decreased [Unknown]
  - Exposure during pregnancy [Unknown]
  - Drug ineffective [Unknown]
